FAERS Safety Report 10172018 (Version 1)
Quarter: 2014Q2

REPORT INFORMATION
  Report Type: Spontaneous
  Country: US (occurrence: US)
  Receive Date: 20140515
  Receipt Date: 20140515
  Transmission Date: 20141212
  Serious: No
  Sender: FDA-Public Use
  Company Number: US-PFIZER INC-2014129682

PATIENT
  Age: 54 Year
  Sex: Male
  Weight: 97.51 kg

DRUGS (7)
  1. LYRICA [Suspect]
     Indication: NEURALGIA
     Dosage: 25 MG, 2X/DAY
     Route: 048
     Dates: start: 20140508
  2. LYRICA [Suspect]
     Indication: NEURALGIA
  3. LYRICA [Suspect]
     Indication: NEURALGIA
  4. SINGULAIR [Concomitant]
     Dosage: UNK, 2X/DAY (BY TAKING ONE IN THE MORNING AFTER GETTING UP)
  5. LORTAB [Concomitant]
     Dosage: UNK
  6. CENTRUM SILVER MEN^S 50+ [Concomitant]
  7. ASPIRIN [Concomitant]
     Indication: CARDIAC DISORDER
     Dosage: 81 MG, 1X/DAY

REACTIONS (2)
  - Nervousness [Unknown]
  - Weight fluctuation [Unknown]
